FAERS Safety Report 13433061 (Version 2)
Quarter: 2017Q4

REPORT INFORMATION
  Report Type: Spontaneous
  Country: CH (occurrence: CH)
  Receive Date: 20170412
  Receipt Date: 20171103
  Transmission Date: 20180320
  Serious: Yes (Death, Other)
  Sender: FDA-Public Use
  Company Number: CH-PFIZER INC-2017096975

PATIENT
  Age: 80 Year
  Sex: Male
  Weight: 76 kg

DRUGS (9)
  1. BUDESONIDE. [Suspect]
     Active Substance: BUDESONIDE
     Indication: HEPATITIS
     Dosage: UNK, HIGH-DOSE CORTOCISTEROIDS
     Dates: start: 2011, end: 2012
  2. AZATHIOPRINE. [Suspect]
     Active Substance: AZATHIOPRINE
     Indication: HEPATITIS
     Dosage: UNK
     Dates: start: 2011, end: 2011
  3. AZATHIOPRINE. [Suspect]
     Active Substance: AZATHIOPRINE
     Dosage: UNK
     Dates: start: 2014, end: 2015
  4. PREDNISOLONE. [Suspect]
     Active Substance: PREDNISOLONE
     Dosage: UNK, HIGH-DOSE CORTOCISTEROIDS
     Dates: start: 2011, end: 2011
  5. CELLCEPT [Suspect]
     Active Substance: MYCOPHENOLATE MOFETIL\MYCOPHENOLATE MOFETIL HYDROCHLORIDE
     Indication: HEPATITIS
     Dosage: UNK
     Dates: start: 2011, end: 2011
  6. METHYLPREDNISOLONE. [Suspect]
     Active Substance: METHYLPREDNISOLONE
     Indication: HEPATITIS
     Dosage: UNK, HIGH-DOSE CORTOCISTEROIDS
     Dates: start: 2009
  7. PREDNISOLONE. [Suspect]
     Active Substance: PREDNISOLONE
     Dosage: UNK, HIGH-DOSE CORTOCISTEROIDS
     Dates: start: 2014, end: 2015
  8. PREDNISONE. [Suspect]
     Active Substance: PREDNISONE
     Indication: HEPATITIS
     Dosage: UNK, HIGH-DOSE CORTOCISTEROIDS
     Dates: start: 2013, end: 2013
  9. PREDNISOLONE. [Suspect]
     Active Substance: PREDNISOLONE
     Indication: HEPATITIS
     Dosage: UNK, HIGH-DOSE CORTOCISTEROIDS
     Dates: start: 2010, end: 2010

REACTIONS (1)
  - Visceral leishmaniasis [Fatal]
